FAERS Safety Report 23778656 (Version 1)
Quarter: 2024Q2

REPORT INFORMATION
  Report Type: Report from Study
  Country: PH (occurrence: PH)
  Receive Date: 20240424
  Receipt Date: 20240424
  Transmission Date: 20240715
  Serious: Yes (Hospitalization)
  Sender: FDA-Public Use
  Company Number: PH-OTSUKA-2024_009068

PATIENT
  Sex: Female

DRUGS (1)
  1. TOLVAPTAN [Suspect]
     Active Substance: TOLVAPTAN
     Indication: Product used for unknown indication
     Dosage: 1 DF, QD (15 MG, 1 TABLET EVERY DAY)
     Route: 065

REACTIONS (3)
  - Hand amputation [Unknown]
  - Cardiac failure [Unknown]
  - Blood sodium decreased [Unknown]
